FAERS Safety Report 12561810 (Version 1)
Quarter: 2016Q3

REPORT INFORMATION
  Report Type: Spontaneous
  Country: CN (occurrence: CN)
  Receive Date: 20160715
  Receipt Date: 20160715
  Transmission Date: 20161109
  Serious: Yes (Disabling)
  Sender: FDA-Public Use
  Company Number: CN-PFIZER INC-2016340911

PATIENT
  Age: 48 Year
  Sex: Male
  Weight: 61 kg

DRUGS (2)
  1. SOLU-MEDROL [Suspect]
     Active Substance: METHYLPREDNISOLONE SODIUM SUCCINATE
     Indication: NEPHROTIC SYNDROME
     Dosage: 80 MG, 1X/DAY
     Route: 041
     Dates: start: 20160220, end: 20160227
  2. LEVOFLOXACIN/SODIUM CHLORIDE [Concomitant]
     Indication: LUNG INFECTION
     Dosage: 0.3 G, 1X/DAY
     Route: 041
     Dates: start: 20151223, end: 20151229

REACTIONS (1)
  - Liver disorder [Recovering/Resolving]

NARRATIVE: CASE EVENT DATE: 20160227
